FAERS Safety Report 8030731-6 (Version None)
Quarter: 2012Q1

REPORT INFORMATION
  Report Type: 
  Country: None (occurrence: None)
  Receive Date: 20120109
  Receipt Date: 20111226
  Transmission Date: 20120608
  Serious: Yes (Other)
  Sender: FDA-Public Use
  Company Number: DE-ROCHE-1026407

PATIENT

DRUGS (2)
  1. RITUXIMAB [Suspect]
     Indication: CHEMOTHERAPY
  2. TRETINOIN [Suspect]
     Indication: CHEMOTHERAPY

REACTIONS (1)
  - NEUTROPENIA [None]
